FAERS Safety Report 6711800-7 (Version None)
Quarter: 2010Q2

REPORT INFORMATION
  Report Type: 
  Country: None (occurrence: None)
  Receive Date: 20100505
  Receipt Date: 20100429
  Transmission Date: 20101027
  Serious: Yes (Other)
  Sender: FDA-Public Use
  Company Number: US-RB-003379-10

PATIENT
  Age: 61 Year
  Sex: Male

DRUGS (1)
  1. SUBOXONE [Suspect]
     Route: 060
     Dates: start: 20100201

REACTIONS (9)
  - AMNESIA [None]
  - BACK PAIN [None]
  - CONSTIPATION [None]
  - DIZZINESS [None]
  - DRUG WITHDRAWAL SYNDROME [None]
  - FATIGUE [None]
  - HALLUCINATION [None]
  - INFECTED BITES [None]
  - SWELLING [None]
